FAERS Safety Report 5157455-7 (Version None)
Quarter: 2006Q4

REPORT INFORMATION
  Report Type: 
  Country: None (occurrence: None)
  Receive Date: 20061127
  Receipt Date: 20061116
  Transmission Date: 20070319
  Serious: Yes (Death)
  Sender: FDA-Public Use
  Company Number: PHEH2006US14360

PATIENT
  Sex: Female

DRUGS (1)
  1. FORADIL [Suspect]

REACTIONS (1)
  - DEVICE MALFUNCTION [None]
